FAERS Safety Report 9359345 (Version 1)
Quarter: 2013Q2

REPORT INFORMATION
  Report Type: Spontaneous
  Country: DE (occurrence: None)
  Receive Date: 20130618
  Receipt Date: 20130618
  Transmission Date: 20140414
  Serious: Yes (Congenital Anomaly, Other)
  Sender: FDA-Public Use
  Company Number: E2B-00000960

PATIENT
  Sex: Male
  Weight: 1.77 kg

DRUGS (2)
  1. SERTRALINE [Suspect]
     Indication: DEPRESSION
     Route: 064
     Dates: start: 20090125
  2. FOLIC ACID (FEMIBION) (UNKNOWN) [Concomitant]

REACTIONS (6)
  - Small for dates baby [None]
  - Naevus flammeus [None]
  - Haemangioma congenital [None]
  - Feeding disorder neonatal [None]
  - Weight gain poor [None]
  - Maternal drugs affecting foetus [None]
